FAERS Safety Report 13559419 (Version 1)
Quarter: 2017Q2

REPORT INFORMATION
  Report Type: Report from Study
  Country: US (occurrence: US)
  Receive Date: 20170518
  Receipt Date: 20170518
  Transmission Date: 20170830
  Serious: Yes (Life-Threatening, Hospitalization)
  Sender: FDA-Public Use
  Company Number: US-SA-2016SA050547

PATIENT
  Age: 58 Year
  Sex: Male
  Weight: 85.4 kg

DRUGS (5)
  1. VANDETANIB. [Suspect]
     Active Substance: VANDETANIB
     Indication: GLIOBLASTOMA
     Route: 048
     Dates: start: 20071016, end: 20071105
  2. TEMOZOLOMIDE. [Suspect]
     Active Substance: TEMOZOLOMIDE
     Indication: GLIOBLASTOMA
     Route: 065
     Dates: start: 20071022, end: 20071105
  3. BACTRIM [Concomitant]
     Active Substance: SULFAMETHOXAZOLE\TRIMETHOPRIM
     Route: 048
     Dates: start: 20071016
  4. DEXAMETHASONE SALT NOT SPECIFIED [Suspect]
     Active Substance: DEXAMETHASONE
     Route: 065
     Dates: start: 20071030
  5. REGLAN [Concomitant]
     Active Substance: METOCLOPRAMIDE HYDROCHLORIDE
     Route: 048
     Dates: start: 20071016

REACTIONS (3)
  - Abdominal pain [Recovered/Resolved]
  - Large intestine perforation [Recovered/Resolved]
  - Diverticulitis [Recovered/Resolved]

NARRATIVE: CASE EVENT DATE: 20071106
